FAERS Safety Report 7581474-4 (Version None)
Quarter: 2011Q2

REPORT INFORMATION
  Report Type: 
  Country: None (occurrence: None)
  Receive Date: 20110629
  Receipt Date: 20110620
  Transmission Date: 20111010
  Serious: Yes (Congenital Anomaly, Other)
  Sender: FDA-Public Use
  Company Number: PHHY2011FR55552

PATIENT
  Sex: Male
  Weight: 1.95 kg

DRUGS (2)
  1. TEGRETOL [Suspect]
     Indication: EPILEPSY
     Dosage: 500 MG PER DAY
     Route: 064
  2. FOLIC ACID [Concomitant]

REACTIONS (4)
  - DRUG EXPOSURE DURING PREGNANCY [None]
  - CONGENITAL HAND MALFORMATION [None]
  - FOETAL GROWTH RESTRICTION [None]
  - SMALL FOR DATES BABY [None]
